FAERS Safety Report 12773048 (Version 1)
Quarter: 2016Q3

REPORT INFORMATION
  Report Type: Spontaneous
  Country: None (occurrence: US)
  Receive Date: 20160922
  Receipt Date: 20160922
  Transmission Date: 20161109
  Serious: No
  Sender: FDA-Public Use
  Company Number: US-BION-20160286

PATIENT
  Age: 85 Year
  Sex: Female
  Weight: 54.43 kg

DRUGS (3)
  1. ZYRTEC [Suspect]
     Active Substance: CETIRIZINE HYDROCHLORIDE
     Indication: SEASONAL ALLERGY
     Dosage: ONLY ONE DOSE, 1 DSF AT NOON
     Route: 048
     Dates: start: 20160705, end: 20160705
  2. TYLENOL [Concomitant]
     Active Substance: ACETAMINOPHEN
     Indication: HEADACHE
  3. FLUTICASONE ALLERGY SPRAY [Concomitant]
     Indication: HYPERSENSITIVITY

REACTIONS (1)
  - Somnolence [Recovering/Resolving]

NARRATIVE: CASE EVENT DATE: 20160705
